FAERS Safety Report 5253311-4 (Version None)
Quarter: 2007Q1

REPORT INFORMATION
  Report Type: 
  Country: None (occurrence: None)
  Receive Date: 20070301
  Receipt Date: 20070221
  Transmission Date: 20070707
  Serious: Yes (Hospitalization)
  Sender: FDA-Public Use
  Company Number: BE-ROCHE-420891

PATIENT
  Age: 61 Year
  Sex: Male

DRUGS (59)
  1. ZENAPAX [Suspect]
     Route: 042
     Dates: start: 20050628, end: 20050628
  2. ZENAPAX [Suspect]
     Route: 042
     Dates: start: 20050705, end: 20050705
  3. MYCOPHENOLATE MOFETIL [Suspect]
     Route: 042
     Dates: start: 20050628, end: 20050628
  4. MYCOPHENOLATE MOFETIL [Suspect]
     Route: 042
     Dates: start: 20050629, end: 20050703
  5. MYCOPHENOLATE MOFETIL [Suspect]
     Route: 048
     Dates: start: 20050704, end: 20060202
  6. MYCOPHENOLATE MOFETIL [Suspect]
     Dosage: RETURN TOWARDS PROTOCOL DOSE
     Route: 048
     Dates: start: 20060203, end: 20060216
  7. MYCOPHENOLATE MOFETIL [Suspect]
     Dosage: DOSE REDUCED BECAUSE OF RISK OF INFECTION
     Route: 048
     Dates: start: 20060217, end: 20060308
  8. MYCOPHENOLATE MOFETIL [Suspect]
     Dosage: DOSE REDUCED BECAUSED OF RISK OF INFECTION
     Route: 048
     Dates: start: 20060309, end: 20060420
  9. MYCOPHENOLATE MOFETIL [Suspect]
     Dosage: DOSE REDUCED BECAUSE OF RISK OF INFECTION
     Route: 048
     Dates: start: 20060421, end: 20060518
  10. MYCOPHENOLATE MOFETIL [Suspect]
     Route: 048
     Dates: start: 20060519, end: 20060623
  11. TACROLIMUS [Suspect]
     Route: 048
     Dates: start: 20050703, end: 20060623
  12. METHYLPREDNISOLONE 16MG TAB [Suspect]
     Route: 065
     Dates: start: 20050628, end: 20050921
  13. LORMETAZEPAM [Concomitant]
     Dates: start: 20050728
  14. AMPICILLIN [Concomitant]
     Indication: INFECTION PROPHYLAXIS
     Dosage: STOPPED ON 29 JUNE 2005, RESTARTED ON 1 OCTOBER 2005
     Dates: start: 20050628, end: 20051002
  15. CEFOTAXIM [Concomitant]
     Indication: INFECTION PROPHYLAXIS
     Dosage: STOPPED ON 29 JUNE 2005, RESTARTED ON 1 OCTOBER 2005, STOPPED ON 17 OCTOBER 2005, RESTARTED ON 4 OC+
     Dates: start: 20050628, end: 20051017
  16. TOBRAMYCIN [Concomitant]
     Indication: INFECTION PROPHYLAXIS
     Dosage: STOPPED ON 28 JUNE 2005, RESTARTED ON 1 OCTOBER 2005.
     Dates: start: 20050628, end: 20051002
  17. AMPHOTERICIN B [Concomitant]
     Indication: INFECTION PROPHYLAXIS
     Dosage: STOPPED ON 28 JUNE 2006, RESTARTED ON 1 OCTOBER 2005
     Dates: start: 20050628, end: 20051002
  18. POLYMYXINE [Concomitant]
     Indication: INFECTION PROPHYLAXIS
     Dosage: STOPED ON 28 JUNE 2005, RESTARTED ON 1 OCTOBER 2005
     Dates: start: 20050628, end: 20051002
  19. NYSTATINE [Concomitant]
     Indication: INFECTION PROPHYLAXIS
     Dosage: STOPPED ON 23 SEPTEMBER 2005, RESTARTED ON 3 OCTOBER 2005, STOPPED 21 DECEMBER 2005, RESTARTED ON 2+
     Dates: start: 20050629, end: 20060805
  20. RANITIDINE [Concomitant]
     Indication: PROPHYLAXIS
     Dosage: STOPPED ON 21 SEPTEMBER 2005, RESTARTED ON 1 OCTOBER 2005, STOPPED ON 17 OCTOBER 2005, RESTARTED ON+
     Dates: start: 20050628, end: 20060104
  21. DUOVENT [Concomitant]
     Indication: INFECTION PROPHYLAXIS
     Dosage: STOPPED ON 28 JUNE 2005, RESTARTED ON 14 OCTOBER 2005
     Dates: start: 20050628, end: 20051019
  22. METOPROLOL TARTRATE [Concomitant]
     Indication: HYPERTENSION
     Dates: start: 20050629
  23. AMLODIPINE [Concomitant]
     Indication: HYPERTENSION
     Dosage: STOPPED ON 30 JUNE 2005, RESTARTED ON 21 OCTOBER 2005
     Dates: start: 20050629
  24. ENOXAPARIN SODIUM [Concomitant]
     Dosage: STOPPED ON 7 JULY 2005, RESTARTED ON 1 OCTOBER 2005, STOPPED ON 2 OCTOBER 2005, RESTARTED ON 5 OCTO+
     Dates: start: 20050629, end: 20051102
  25. MAGNESIUM SULFATE [Concomitant]
     Dosage: STOPPED ON 2 OCTOBER 2005, RESTARTED ON 6 OCTOBER 2005, STOPPED ON 9 OCTOBER 2005, RESTARTED 21 OCT+
     Dates: start: 20050628, end: 20060104
  26. FUROSEMIDE [Concomitant]
     Dates: start: 20050630, end: 20050708
  27. PARACETAMOL [Concomitant]
     Indication: ABDOMINAL PAIN
     Dosage: STOPPED 2/07, RESTART 6/7 FOR 1 DAY, RESTART 19/07-21/07. RESTART 4/10/-6/10, RESTART 16/10 FOR 1 D+
     Dates: start: 20050630, end: 20060712
  28. EUSAPRIM [Concomitant]
     Indication: INFECTION PROPHYLAXIS
     Dates: start: 20050630, end: 20050921
  29. CALCIUM CARBONATE [Concomitant]
     Dates: start: 20050701
  30. TRAMADOL HYDROCHLORIDE [Concomitant]
     Indication: BACK PAIN
     Dosage: STOPPED ON 6 OCTOBER 2006, RESTARTED ON 7 OCTOBER 2005, STOPPED ON 9 OCTOBER 2005, RESTARTED ON 5 J+
     Dates: start: 20051006, end: 20060709
  31. MOVICOL [Concomitant]
     Dates: start: 20051012, end: 20051012
  32. FLEET [Concomitant]
     Dates: start: 20051012, end: 20051012
  33. LACTULOSE [Concomitant]
     Dates: start: 20051125, end: 20051215
  34. IBUPROFEN [Concomitant]
     Indication: BACK PAIN
     Dates: start: 20050923, end: 20051003
  35. SALBUTAMOL [Concomitant]
     Indication: INFECTION PROPHYLAXIS
     Dates: start: 20051001, end: 20051003
  36. KALIUM CHLORIDE [Concomitant]
     Dates: start: 20051001, end: 20051001
  37. NATRIUMPHOSPHATE [Concomitant]
     Dates: start: 20061002, end: 20061002
  38. ALPRAZOLAM [Concomitant]
     Indication: ANXIETY
     Dosage: STOPPED ON 4 OCTOBER 2005, RESTARTED ON 19 OCTOBER 2005.
     Dates: start: 20051003
  39. METOPROLOL TARTRATE [Concomitant]
     Dates: start: 20061004
  40. CLARITHROMYCIN [Concomitant]
     Indication: INFECTION PROPHYLAXIS
     Dates: start: 20051004, end: 20051009
  41. CLORAZEPATE DIPOTASSIUM [Concomitant]
     Indication: ANXIETY
     Dosage: STOPPED ON 4 OCTOBER 2005, RESTARTED ON 6 OCTOBER 2005
     Dates: start: 20051004, end: 20051007
  42. VANCOMYCIN [Concomitant]
     Dosage: STOPPED ON 9 OCTOBER 2005, RESTARTED ON 11 OCT 2005 - REPORTED AS ONGOING, RESTARTED ON 8 JULY 2006+
     Dates: start: 20051007, end: 20060708
  43. PAROXETINE HCL [Concomitant]
     Dosage: STOPPED ON 7 OCTOBER 2005, RESTARTED ON 9 OCTOBER 2005.
     Dates: start: 20051007, end: 20051009
  44. ASCORBIN [Concomitant]
     Indication: VITAMIN C INCREASED
     Dates: start: 20051010, end: 20051017
  45. DIAZEPAM [Concomitant]
     Dates: start: 20051011, end: 20051011
  46. FENTANYL [Concomitant]
     Dates: start: 20051011, end: 20051011
  47. BUPRENORFINA [Concomitant]
     Indication: RESTLESSNESS
     Dates: start: 20051011, end: 20051104
  48. NICARDIPINE HYDROCHLORIDE [Concomitant]
     Indication: HYPERTENSION
     Dates: start: 20051004, end: 20051017
  49. ACETYLCYSTEINE [Concomitant]
     Indication: INFECTION PROPHYLAXIS
     Dates: start: 20051014, end: 20051020
  50. EUSAPRIM [Concomitant]
     Dates: start: 20051022, end: 20060104
  51. 1 CONCOMITANT DRUG [Concomitant]
     Indication: ANAEMIA
     Dosage: DRUG NAME: PACKED CELLS.
     Dates: start: 20051014, end: 20051014
  52. HALOPERIDOL [Concomitant]
     Dates: start: 20051012, end: 20051012
  53. ZOLPIDEM TARTRATE [Concomitant]
     Dates: start: 20051117, end: 20060228
  54. TERAZOSIN HCL [Concomitant]
     Indication: HYPERTENSION
     Dates: start: 20051104, end: 20060104
  55. LEVOFLOXACIN [Concomitant]
     Indication: INFECTION PROPHYLAXIS
     Dosage: STOPPED ON 19 NOVEMBER 2005, RESTARTED FOR FEVER ON 1 JULY 2006
     Dates: start: 20051105, end: 20060707
  56. LOPERAMIDE HYDROCHLORIDE [Concomitant]
     Indication: DIARRHOEA
     Dates: start: 20051211, end: 20060115
  57. CETIRIZINE HCL [Concomitant]
     Dates: start: 20060120, end: 20060701
  58. FORLAX [Concomitant]
     Dosage: STOPPED ON 29 JUNE 2006, RESTARTED AND STOPPED ON 4 JULY 2006, RESTARTED ON 9 JULY 2006, STOPPED ON+
     Dates: start: 20060627, end: 20060719
  59. TAZOCIN [Concomitant]
     Dates: start: 20060708, end: 20060720

REACTIONS (2)
  - INTERVERTEBRAL DISCITIS [None]
  - OSTEOPENIA [None]
